FAERS Safety Report 6712864-7 (Version None)
Quarter: 2010Q2

REPORT INFORMATION
  Report Type: 
  Country: None (occurrence: None)
  Receive Date: 20100426
  Receipt Date: 20091203
  Transmission Date: 20101027
  Serious: Yes (Hospitalization)
  Sender: FDA-Public Use
  Company Number: 2008BI031364

PATIENT
  Age: 49 Year
  Sex: Female

DRUGS (2)
  1. TYSABRI [Suspect]
     Indication: MULTIPLE SCLEROSIS
     Dosage: 300 MG;QM; IV
     Route: 042
     Dates: start: 20080507, end: 20081111
  2. AVONEX [Concomitant]

REACTIONS (8)
  - ARTHRALGIA [None]
  - BALANCE DISORDER [None]
  - FATIGUE [None]
  - NEURALGIA [None]
  - PRURITUS GENERALISED [None]
  - URINARY TRACT INFECTION [None]
  - URTICARIA [None]
  - VEIN DISORDER [None]
